FAERS Safety Report 23566399 (Version 1)
Quarter: 2024Q1

REPORT INFORMATION
  Report Type: Spontaneous
  Country: US (occurrence: US)
  Receive Date: 20240226
  Receipt Date: 20240226
  Transmission Date: 20240410
  Serious: Yes (Hospitalization, Other)
  Sender: FDA-Public Use
  Company Number: US-INCYTE CORPORATION-2024IN001987

PATIENT

DRUGS (1)
  1. JAKAFI [Suspect]
     Active Substance: RUXOLITINIB
     Indication: Hepatic failure
     Dosage: 5 MILLIGRAM, BID (MIX 1 TABLET IN WATER AND STIR FOR 10 MINUTES TWICE DAILY)

REACTIONS (2)
  - Acute hepatic failure [Unknown]
  - Off label use [Unknown]
